FAERS Safety Report 16348893 (Version 2)
Quarter: 2019Q2

REPORT INFORMATION
  Report Type: Spontaneous
  Country: US (occurrence: US)
  Receive Date: 20190523
  Receipt Date: 20190620
  Transmission Date: 20190711
  Serious: Yes (Hospitalization, Other)
  Sender: FDA-Public Use
  Company Number: US-BAYER-2019-100683

PATIENT
  Age: 31 Year
  Sex: Female

DRUGS (2)
  1. CALCIUM CARBONATE. [Suspect]
     Active Substance: CALCIUM CARBONATE
     Indication: GASTROOESOPHAGEAL REFLUX DISEASE
     Dosage: UNQUANTIFIABLE AMOUNT DUE TO CONSTANT CONSUMPTION ()
     Route: 048
  2. PRENATAL VITAMINS [MINERALS NOS;VITAMINS NOS] [Concomitant]
     Active Substance: MINERALS\VITAMINS
     Dosage: 1 DF, QD
     Route: 048

REACTIONS (7)
  - Paraesthesia [Unknown]
  - Pancreatitis [Recovered/Resolved]
  - Hypercalcaemia [Recovered/Resolved]
  - Intentional product misuse [Recovered/Resolved]
  - Maternal exposure during pregnancy [Recovered/Resolved]
  - Metabolic acidosis [Unknown]
  - Hypocalcaemia [Unknown]
